FAERS Safety Report 9345602 (Version 1)
Quarter: 2013Q2

REPORT INFORMATION
  Report Type: Spontaneous
  Country: US (occurrence: US)
  Receive Date: 20130613
  Receipt Date: 20130613
  Transmission Date: 20140414
  Serious: No
  Sender: FDA-Public Use
  Company Number: US-009507513-1306USA002281

PATIENT
  Age: 17 Year
  Sex: Female

DRUGS (6)
  1. EMEND [Suspect]
     Indication: PROPHYLAXIS OF NAUSEA AND VOMITING
     Dosage: 115 MG,
     Route: 042
     Dates: start: 20130506
  2. EMEND [Suspect]
     Indication: PROPHYLAXIS OF NAUSEA AND VOMITING
     Dosage: 80 MG,FOR NEXR 2 DAYS FOLLOWING IV EMEND
     Route: 048
     Dates: start: 20130507
  3. INSULIN [Concomitant]
  4. ZYRTEC [Concomitant]
  5. PEPCID [Concomitant]
  6. DAPSONE [Concomitant]

REACTIONS (1)
  - Drug ineffective [Unknown]
